FAERS Safety Report 6306362-2 (Version None)
Quarter: 2009Q3

REPORT INFORMATION
  Report Type: 
  Country: None (occurrence: None)
  Receive Date: 20090810
  Receipt Date: 20090730
  Transmission Date: 20100115
  Serious: Yes (Other)
  Sender: FDA-Public Use
  Company Number: CAP09000184

PATIENT
  Age: 50 Year
  Sex: Female

DRUGS (1)
  1. ACTONEL [Suspect]
     Dosage: 75 MG TWO CONSECUTIVE DAYS PER MONTH, ORAL
     Route: 048

REACTIONS (1)
  - NEOPLASM PROGRESSION [None]
